FAERS Safety Report 6888689-9 (Version None)
Quarter: 2010Q3

REPORT INFORMATION
  Report Type: 
  Country: None (occurrence: None)
  Receive Date: 20100730
  Receipt Date: 20071031
  Transmission Date: 20110219
  Serious: Yes (Other)
  Sender: FDA-Public Use
  Company Number: US-PFIZER INC-2007019740

PATIENT
  Sex: Male
  Weight: 61.2 kg

DRUGS (4)
  1. LIPITOR [Suspect]
     Indication: BLOOD CHOLESTEROL INCREASED
     Dates: start: 20040306
  2. HYDROCHLOROTHIAZIDE [Concomitant]
     Indication: HYPERTENSION
     Dates: start: 20040101
  3. LUPRON [Concomitant]
     Indication: PROSTATE CANCER
     Dates: start: 20020101
  4. MULTI-VITAMINS [Concomitant]
     Dates: start: 19870101

REACTIONS (1)
  - GLAUCOMA [None]
